FAERS Safety Report 14491136 (Version 2)
Quarter: 2018Q2

REPORT INFORMATION
  Report Type: Spontaneous
  Country: US (occurrence: US)
  Receive Date: 20180206
  Receipt Date: 20180613
  Transmission Date: 20180711
  Serious: No
  Sender: FDA-Public Use
  Company Number: US-BRISTOL-MYERS SQUIBB COMPANY-BMS-2018-009636

PATIENT
  Sex: Female

DRUGS (1)
  1. ORENCIA [Suspect]
     Active Substance: ABATACEPT
     Indication: RHEUMATOID ARTHRITIS
     Dosage: 125 MG, QWK
     Route: 058
     Dates: start: 201508

REACTIONS (9)
  - Nausea [Unknown]
  - Malaise [Unknown]
  - Respiratory tract congestion [Unknown]
  - Headache [Unknown]
  - Sinus pain [Unknown]
  - Vomiting [Unknown]
  - Influenza [Unknown]
  - Pain [Unknown]
  - Upper respiratory tract infection [Unknown]
